FAERS Safety Report 9415807 (Version 1)
Quarter: 2013Q3

REPORT INFORMATION
  Report Type: Report from Study
  Country: IN (occurrence: IN)
  Receive Date: 20130724
  Receipt Date: 20130724
  Transmission Date: 20140515
  Serious: Yes (Other)
  Sender: FDA-Public Use
  Company Number: IN-ROCHE-1252220

PATIENT
  Age: 34 Year
  Sex: Female
  Weight: 42 kg

DRUGS (2)
  1. EXXURA [Suspect]
     Indication: HEPATITIS C
     Route: 058
     Dates: start: 20130623, end: 20130707
  2. COPEGUS [Suspect]
     Indication: HEPATITIS C
     Route: 048
     Dates: start: 20130623, end: 20130707

REACTIONS (3)
  - Haematemesis [Recovering/Resolving]
  - Dizziness [Recovering/Resolving]
  - Asthenia [Not Recovered/Not Resolved]
